FAERS Safety Report 25890934 (Version 1)
Quarter: 2025Q4

REPORT INFORMATION
  Report Type: Spontaneous
  Country: US (occurrence: US)
  Receive Date: 20251007
  Receipt Date: 20251007
  Transmission Date: 20260117
  Serious: Yes (Life-Threatening, Other)
  Sender: EPIC PHARM
  Company Number: US-EPICPHARMA-US-2025EPCLIT01133

PATIENT
  Age: 49 Year
  Sex: Male

DRUGS (13)
  1. CARBOPLATIN [Suspect]
     Active Substance: CARBOPLATIN
     Indication: Germ cell neoplasm
     Route: 065
     Dates: start: 202109
  2. CARBOPLATIN [Suspect]
     Active Substance: CARBOPLATIN
     Route: 065
     Dates: start: 202111
  3. ETOPOSIDE [Suspect]
     Active Substance: ETOPOSIDE
     Indication: Germ cell neoplasm
     Dosage: FIRST LINE TREATMENT
     Route: 065
  4. ETOPOSIDE [Suspect]
     Active Substance: ETOPOSIDE
     Dosage: THREE CYCLES
     Route: 065
  5. ETOPOSIDE [Suspect]
     Active Substance: ETOPOSIDE
     Route: 065
     Dates: start: 202109
  6. ETOPOSIDE [Suspect]
     Active Substance: ETOPOSIDE
     Route: 065
     Dates: start: 202111
  7. ETOPOSIDE [Suspect]
     Active Substance: ETOPOSIDE
     Dosage: FOUR COURSES
     Route: 048
  8. BLEOMYCIN [Concomitant]
     Active Substance: BLEOMYCIN SULFATE
     Indication: Germ cell neoplasm
     Route: 065
  9. CISPLATIN [Concomitant]
     Active Substance: CISPLATIN
     Indication: Germ cell neoplasm
     Route: 065
  10. CISPLATIN [Concomitant]
     Active Substance: CISPLATIN
     Dosage: THREE CYCLES
     Route: 065
  11. IFOSFAMIDE [Concomitant]
     Active Substance: IFOSFAMIDE
     Indication: Germ cell neoplasm
     Route: 065
  12. PEMBROLIZUMAB [Concomitant]
     Active Substance: PEMBROLIZUMAB
     Indication: Germ cell neoplasm
     Dosage: ONE DOSE
     Route: 065
  13. IPILIMUMAB;NIVOLUMAB [Concomitant]
     Indication: Germ cell neoplasm
     Dosage: FOUR COURSES
     Route: 065

REACTIONS (3)
  - Sepsis [Recovered/Resolved]
  - Colitis [Recovered/Resolved]
  - Drug ineffective for unapproved indication [Unknown]
